FAERS Safety Report 6384050-4 (Version None)
Quarter: 2009Q4

REPORT INFORMATION
  Report Type: 
  Country: None (occurrence: None)
  Receive Date: 20091001
  Receipt Date: 20090925
  Transmission Date: 20100525
  Serious: Yes (Other)
  Sender: FDA-Public Use
  Company Number: FR-JNJFOC-20090907324

PATIENT
  Age: 70 Year
  Sex: Female

DRUGS (10)
  1. RISPERDAL [Suspect]
     Indication: DRUG USE FOR UNKNOWN INDICATION
     Route: 048
  2. CITALOPRAM HYDROBROMIDE [Suspect]
     Indication: DRUG USE FOR UNKNOWN INDICATION
     Route: 065
  3. IMOVANE [Concomitant]
     Route: 065
  4. LEVOTHYROXINE SODIUM [Concomitant]
     Route: 065
  5. EQUANIL [Concomitant]
     Route: 065
  6. EBIXA [Concomitant]
     Route: 065
  7. CALCIUM [Concomitant]
     Route: 065
  8. FORLAX [Concomitant]
     Route: 065
  9. TAHOR [Concomitant]
     Route: 065
  10. SPECIAFOLDINE [Concomitant]
     Route: 065

REACTIONS (1)
  - URINARY RETENTION [None]
